FAERS Safety Report 8087986-1 (Version None)
Quarter: 2012Q1

REPORT INFORMATION
  Report Type: 
  Country: None (occurrence: None)
  Receive Date: 20120131
  Receipt Date: 20120117
  Transmission Date: 20120608
  Serious: Yes (Hospitalization)
  Sender: FDA-Public Use
  Company Number: FR-AMGEN-FRASP2012004871

PATIENT
  Age: 29 Year
  Sex: Male

DRUGS (4)
  1. VENTOLIN [Concomitant]
     Indication: ASTHMA
     Dosage: UNK
  2. ENBREL [Suspect]
     Indication: PRODUCT USED FOR UNKNOWN INDICATION
     Dosage: 1 UNK, WEEKLY, 1 INJECTION PER WEEK
     Route: 058
     Dates: start: 20100901, end: 20111101
  3. SYMBICORT [Concomitant]
     Indication: ASTHMA
     Dosage: UNK
  4. BECLOMETASONE DIPROPIONATE W/FORMOTEROL FUMAR [Concomitant]
     Indication: ASTHMA
     Dosage: UNK

REACTIONS (4)
  - NAUSEA [None]
  - HEADACHE [None]
  - TREMOR [None]
  - VOMITING [None]
